FAERS Safety Report 23766894 (Version 1)
Quarter: 2024Q2

REPORT INFORMATION
  Report Type: Spontaneous
  Country: FR (occurrence: FR)
  Receive Date: 20240422
  Receipt Date: 20240422
  Transmission Date: 20240716
  Serious: Yes (Other)
  Sender: FDA-Public Use
  Company Number: FR-ABBVIE-5727534

PATIENT
  Age: 40 Year
  Sex: Female

DRUGS (3)
  1. RINVOQ [Suspect]
     Active Substance: UPADACITINIB
     Indication: Colitis ulcerative
     Dosage: THE WEEKLY DOSE WAS INCREASED BEYOND 16 WEEKS AFTER VALIDATION
     Route: 048
  2. RINVOQ [Suspect]
     Active Substance: UPADACITINIB
     Indication: Colitis ulcerative
     Route: 048
  3. CEPHARANTHINE [Concomitant]
     Active Substance: CEPHARANTHINE
     Indication: Colitis ulcerative

REACTIONS (3)
  - Embolism [Unknown]
  - Drug ineffective [Unknown]
  - Off label use [Unknown]
